FAERS Safety Report 19634437 (Version 4)
Quarter: 2021Q3

REPORT INFORMATION
  Report Type: Report from Study
  Country: GB (occurrence: GB)
  Receive Date: 20210730
  Receipt Date: 20210927
  Transmission Date: 20211014
  Serious: Yes (Death, Hospitalization)
  Sender: FDA-Public Use
  Company Number: GB-ROCHE-2876743

PATIENT
  Age: 78 Year
  Sex: Female
  Weight: 81.8 kg

DRUGS (19)
  1. RO7227166 (CD19 4?1BBL IMAB) [Suspect]
     Active Substance: INVESTIGATIONAL PRODUCT
     Indication: B-CELL LYMPHOMA REFRACTORY
     Dosage: MOST RECENT DOSE OF RO7227166 ON 09/JUN/2021 AT 04:40 PM (1400 UG) ENDED AT 06:40 PM, PRIOR TO AE/SA
     Route: 042
     Dates: start: 20210421
  2. DIHYDROCODEINE [Concomitant]
     Active Substance: DIHYDROCODEINE
     Indication: PYREXIA
     Route: 048
     Dates: start: 20210415
  3. LEVOTHYROXINE. [Concomitant]
     Active Substance: LEVOTHYROXINE
     Indication: HYPOTHYROIDISM
     Route: 048
     Dates: start: 1990
  4. ACICLOVIR [Concomitant]
     Active Substance: ACYCLOVIR
     Route: 048
     Dates: start: 202010
  5. FLUORODEOXYGLUCOSE 18F [Suspect]
     Active Substance: FLUDEOXYGLUCOSE F-18
     Indication: B-CELL LYMPHOMA REFRACTORY
     Dosage: MOST RECENT DOSE OF FLUORODEOXYGLUCOSE 18F WAS RECEIVED ON 15/JUL/2021 PRIOR TO AE/SAE
     Route: 042
     Dates: start: 20210211
  6. METOCLOPRAMIDE. [Concomitant]
     Active Substance: METOCLOPRAMIDE
     Indication: NAUSEA
     Route: 048
     Dates: start: 20210327
  7. RAMIPRIL. [Concomitant]
     Active Substance: RAMIPRIL
     Indication: HYPERTENSION
     Route: 048
  8. BENDROFLUMETHIAZIDE [Concomitant]
     Active Substance: BENDROFLUMETHIAZIDE
     Indication: HYPERTENSION
     Route: 048
  9. FERROUS SULFATE. [Concomitant]
     Active Substance: FERROUS SULFATE
     Indication: BLOOD IRON DECREASED
     Route: 048
     Dates: start: 202008
  10. OBINUTUZUMAB. [Suspect]
     Active Substance: OBINUTUZUMAB
     Indication: B-CELL LYMPHOMA REFRACTORY
     Dosage: MOST RECENT DOSE OF OBINUTUZUMAB WAS ADMINISTERED ON 17/MAR/2021 AT 10:21 AM (1000 MG), ENDED AT 03:
     Route: 042
     Dates: start: 20210317
  11. SALBUTAMOL [Concomitant]
     Active Substance: ALBUTEROL
     Dosage: ONCE
     Route: 048
     Dates: start: 20210713, end: 20210713
  12. METOCLOPRAMIDE. [Concomitant]
     Active Substance: METOCLOPRAMIDE
     Indication: VOMITING
  13. TAZOCIN [Concomitant]
     Active Substance: PIPERACILLIN SODIUM\TAZOBACTAM SODIUM
     Indication: LUNG CONSOLIDATION
  14. GLOFITAMAB. [Suspect]
     Active Substance: GLOFITAMAB
     Indication: B-CELL LYMPHOMA REFRACTORY
     Dosage: MOST RECENT DOSE OF RO7082859 WAS ADMINISTERED ON 09/JUN/2021 (30 MG) STARTED AT 10:53 AM AND ENDED
     Route: 042
     Dates: start: 20210323
  15. PARACETAMOL [Concomitant]
     Active Substance: ACETAMINOPHEN
     Indication: PYREXIA
     Route: 048
     Dates: start: 20210415
  16. APIXABAN [Concomitant]
     Active Substance: APIXABAN
     Route: 048
     Dates: start: 201905
  17. CO?AMOXICLAV [Concomitant]
     Active Substance: AMOXICILLIN\CLAVULANATE POTASSIUM
     Indication: WOUND INFECTION
     Route: 048
     Dates: start: 20210303
  18. TAZOCIN [Concomitant]
     Active Substance: PIPERACILLIN SODIUM\TAZOBACTAM SODIUM
     Indication: VASCULAR DEVICE INFECTION
     Route: 042
     Dates: start: 20210401
  19. COCODAMOL [Concomitant]
     Active Substance: ACETAMINOPHEN\CODEINE PHOSPHATE
     Route: 048

REACTIONS (2)
  - Vomiting [Recovered/Resolved]
  - Diarrhoea [Recovered/Resolved]

NARRATIVE: CASE EVENT DATE: 20210721
